FAERS Safety Report 11002896 (Version 4)
Quarter: 2018Q4

REPORT INFORMATION
  Report Type: Spontaneous
  Country: US (occurrence: US)
  Receive Date: 20150408
  Receipt Date: 20181220
  Transmission Date: 20190204
  Serious: Yes (Other)
  Sender: FDA-Public Use
  Company Number: US-BIOMARINAP-US-2015-106027

PATIENT
  Age: 30 Year
  Sex: Female

DRUGS (1)
  1. ALDURAZYME [Suspect]
     Active Substance: LARONIDASE
     Indication: MUCOPOLYSACCHARIDOSIS I
     Dosage: UNK
     Route: 042
     Dates: start: 20031008

REACTIONS (6)
  - Bronchitis [Recovering/Resolving]
  - Malaise [Recovering/Resolving]
  - Sinusitis [Recovering/Resolving]
  - Carpal tunnel syndrome [Recovering/Resolving]
  - Joint dislocation [Recovering/Resolving]
  - Hypoaesthesia [Recovering/Resolving]

NARRATIVE: CASE EVENT DATE: 20180802
